FAERS Safety Report 9525641 (Version 1)
Quarter: 2013Q3

REPORT INFORMATION
  Report Type: Report from Study
  Country: US (occurrence: US)
  Receive Date: 20130916
  Receipt Date: 20130916
  Transmission Date: 20140515
  Serious: Yes (Other)
  Sender: FDA-Public Use
  Company Number: US-ABBVIE-13P-163-1141818-00

PATIENT
  Age: 34 Year
  Sex: Female

DRUGS (5)
  1. LUPRON DEPOT [Suspect]
     Indication: ENDOMETRIOSIS
     Dates: start: 201208
  2. AYGESTIN [Suspect]
     Indication: PRODUCT USED FOR UNKNOWN INDICATION
     Route: 048
     Dates: start: 20130815, end: 20130822
  3. CALCIUM [Concomitant]
     Indication: PRODUCT USED FOR UNKNOWN INDICATION
  4. VITAMIN D [Concomitant]
     Indication: PRODUCT USED FOR UNKNOWN INDICATION
  5. MULTIVITAMIN [Concomitant]
     Indication: PRODUCT USED FOR UNKNOWN INDICATION

REACTIONS (10)
  - Endometriosis ablation [Unknown]
  - Abdominal distension [Recovered/Resolved]
  - Adnexa uteri pain [Recovered/Resolved]
  - Ocular hyperaemia [Recovered/Resolved]
  - Pelvic pain [Not Recovered/Not Resolved]
  - Pelvic pain [Recovered/Resolved]
  - Fatigue [Recovered/Resolved]
  - Malaise [Recovered/Resolved]
  - Eye infection [Not Recovered/Not Resolved]
  - Hot flush [Not Recovered/Not Resolved]
